FAERS Safety Report 9437912 (Version 1)
Quarter: 2013Q3

REPORT INFORMATION
  Report Type: Spontaneous
  Country: US (occurrence: US)
  Receive Date: 20130802
  Receipt Date: 20130802
  Transmission Date: 20140515
  Serious: Yes (Life-Threatening)
  Sender: FDA-Public Use
  Company Number: US-BRISTOL-MYERS SQUIBB COMPANY-18884569

PATIENT
  Age: 81 Year
  Sex: Male

DRUGS (4)
  1. COUMADIN [Suspect]
     Route: 048
  2. ACETYLSALICYLIC ACID [Suspect]
     Route: 048
  3. GLEEVEC [Concomitant]
     Indication: CHRONIC MYELOID LEUKAEMIA
     Route: 048
     Dates: start: 20120718
  4. PROCARDIA [Concomitant]
     Route: 048

REACTIONS (1)
  - Retroperitoneal haematoma [Recovering/Resolving]
